FAERS Safety Report 17428932 (Version 6)
Quarter: 2020Q3

REPORT INFORMATION
  Report Type: Report from Study
  Country: US (occurrence: US)
  Receive Date: 20200218
  Receipt Date: 20200816
  Transmission Date: 20201102
  Serious: No
  Sender: FDA-Public Use
  Company Number: NVSC2020US038133

PATIENT
  Sex: Female

DRUGS (2)
  1. COSENTYX [Suspect]
     Active Substance: SECUKINUMAB
     Indication: PSORIASIS
  2. COSENTYX [Suspect]
     Active Substance: SECUKINUMAB
     Indication: PSORIATIC ARTHROPATHY
     Dosage: 300 MG, QW
     Route: 058

REACTIONS (12)
  - Cough [Not Recovered/Not Resolved]
  - Insomnia [Unknown]
  - Illness [Recovering/Resolving]
  - Taste disorder [Recovered/Resolved]
  - Throat irritation [Recovering/Resolving]
  - Condition aggravated [Unknown]
  - Diarrhoea [Not Recovered/Not Resolved]
  - Nasal congestion [Unknown]
  - Ulcer [Unknown]
  - Rash [Unknown]
  - Gait disturbance [Unknown]
  - Inappropriate schedule of product administration [Not Recovered/Not Resolved]
